FAERS Safety Report 9640013 (Version 1)
Quarter: 2013Q4

REPORT INFORMATION
  Report Type: Report from Study
  Country: US (occurrence: US)
  Receive Date: 20131023
  Receipt Date: 20131023
  Transmission Date: 20140711
  Serious: Yes (Hospitalization)
  Sender: FDA-Public Use
  Company Number: PHEH2013US021805

PATIENT
  Sex: Female

DRUGS (1)
  1. FOCALIN XR [Suspect]
     Dosage: 25 MG
     Dates: start: 20130710

REACTIONS (1)
  - Accidental exposure to product [Unknown]
